FAERS Safety Report 12572146 (Version 1)
Quarter: 2016Q3

REPORT INFORMATION
  Report Type: Spontaneous
  Country: US (occurrence: US)
  Receive Date: 20160719
  Receipt Date: 20160719
  Transmission Date: 20161109
  Serious: No
  Sender: FDA-Public Use
  Company Number: US-MALLINCKRODT-T201601825

PATIENT
  Age: 66 Year
  Sex: Female
  Weight: 70 kg

DRUGS (8)
  1. BUPROPION. [Concomitant]
     Active Substance: BUPROPION
     Dosage: 150 MG, QD (AM)
  2. OMEPRAZOLE. [Concomitant]
     Active Substance: OMEPRAZOLE
     Indication: GASTRIC DISORDER
     Dosage: 20 MG
  3. ABILIFY [Concomitant]
     Active Substance: ARIPIPRAZOLE
     Dosage: 15 MG
  4. NAPROSYN 500 [Concomitant]
  5. GABAPENTIN. [Concomitant]
     Active Substance: GABAPENTIN
  6. OXYCODONE/ACETAMINOPHEN [Suspect]
     Active Substance: ACETAMINOPHEN\OXYCODONE HYDROCHLORIDE
     Indication: PROCEDURAL PAIN
     Dosage: 10/325 MG (UNKNOWN DOSE/FREQUENCY)
     Route: 048
     Dates: start: 2012, end: 2012
  7. OXYCODONE/ACETAMINOPHEN [Suspect]
     Active Substance: ACETAMINOPHEN\OXYCODONE HYDROCHLORIDE
     Dosage: 10/325 MG, ONE TABLET EVERY 6 HRS
     Route: 048
     Dates: start: 20160424, end: 20160428
  8. LORATADINE. [Concomitant]
     Active Substance: LORATADINE

REACTIONS (10)
  - Alcohol poisoning [Recovered/Resolved]
  - Alcohol interaction [Recovered/Resolved]
  - Hallucination, visual [Recovered/Resolved]
  - Intentional product use issue [Recovered/Resolved]
  - Agitation [Recovered/Resolved]
  - Loss of consciousness [Recovered/Resolved]
  - Labelled drug-drug interaction medication error [Recovered/Resolved]
  - Insomnia [Recovered/Resolved]
  - Fatigue [Not Recovered/Not Resolved]
  - Memory impairment [Recovered/Resolved]

NARRATIVE: CASE EVENT DATE: 2012
